FAERS Safety Report 24068062 (Version 2)
Quarter: 2024Q4

REPORT INFORMATION
  Report Type: Spontaneous
  Country: US (occurrence: US)
  Receive Date: 20240710
  Receipt Date: 20241125
  Transmission Date: 20250115
  Serious: No
  Sender: BOEHRINGER INGELHEIM
  Company Number: US-BoehringerIngelheim-2024-BI-038813

PATIENT

DRUGS (1)
  1. OFEV [Suspect]
     Active Substance: NINTEDANIB
     Indication: Product used for unknown indication

REACTIONS (5)
  - Headache [Unknown]
  - Nausea [Recovering/Resolving]
  - Chest discomfort [Recovering/Resolving]
  - Flatulence [Recovering/Resolving]
  - Diarrhoea [Unknown]
